FAERS Safety Report 16607806 (Version 6)
Quarter: 2022Q2

REPORT INFORMATION
  Report Type: Spontaneous
  Country: JP (occurrence: JP)
  Receive Date: 20190722
  Receipt Date: 20220406
  Transmission Date: 20220720
  Serious: Yes (Other)
  Sender: FDA-Public Use
  Company Number: JP-BRISTOL-MYERS SQUIBB COMPANY-BMS-2019-070984

PATIENT
  Age: 61 Year
  Sex: Male

DRUGS (2)
  1. OPDIVO [Suspect]
     Active Substance: NIVOLUMAB
     Indication: Metastatic renal cell carcinoma
     Dosage: 240 MG, Q2W
     Route: 041
     Dates: start: 201802, end: 201808
  2. OPDIVO [Suspect]
     Active Substance: NIVOLUMAB
     Dosage: 240 MG
     Route: 041
     Dates: start: 2018

REACTIONS (5)
  - Nephritis [Recovered/Resolved]
  - Immune-mediated arthritis [Recovering/Resolving]
  - Punctate keratitis [Recovering/Resolving]
  - Sialoadenitis [Unknown]
  - Immune-mediated thyroiditis [Unknown]

NARRATIVE: CASE EVENT DATE: 20180101
